FAERS Safety Report 7058162-6 (Version None)
Quarter: 2010Q4

REPORT INFORMATION
  Report Type: 
  Country: None (occurrence: None)
  Receive Date: 20101022
  Receipt Date: 20101015
  Transmission Date: 20110411
  Serious: Yes (Hospitalization)
  Sender: FDA-Public Use
  Company Number: FR-WYE-H14793310

PATIENT
  Sex: Female
  Weight: 60 kg

DRUGS (11)
  1. NERATINIB [Suspect]
     Indication: NEOPLASM
     Route: 048
     Dates: start: 20100324, end: 20100423
  2. PERINDOPRIL ERBUMINE [Concomitant]
     Indication: HYPERTENSION
     Dosage: 5 MG 1/2 TABLET IN THE MORNING
     Route: 048
     Dates: start: 20080421
  3. DOLIPRANE [Concomitant]
     Dosage: 1 G ONE-OFF DOSE
     Route: 065
  4. LEXOMIL [Concomitant]
     Indication: ANXIETY
     Route: 048
     Dates: start: 20031001
  5. ACUPAN [Concomitant]
     Indication: ABDOMINAL PAIN
     Dosage: UNKNOWN
     Route: 065
     Dates: start: 20100331
  6. CIPROFLOXACIN [Concomitant]
     Indication: URINARY TRACT INFECTION
     Route: 065
     Dates: start: 20100420
  7. DEROXAT [Concomitant]
     Indication: ANXIETY
     Route: 065
     Dates: start: 20100421
  8. DEBRIDAT [Concomitant]
     Indication: ABDOMINAL PAIN
     Dosage: UNKNOWN
     Dates: start: 20090723
  9. VOGALENE [Concomitant]
     Indication: NAUSEA
     Dosage: UNKNOWN
     Route: 065
     Dates: start: 20100421
  10. TEMSIROLIMUS [Suspect]
     Indication: NEOPLASM
     Route: 042
     Dates: start: 20100324, end: 20100423
  11. TIORFAN [Concomitant]
     Route: 048

REACTIONS (2)
  - COLITIS [None]
  - ILEUS [None]
